FAERS Safety Report 18033460 (Version 4)
Quarter: 2020Q4

REPORT INFORMATION
  Report Type: Spontaneous
  Country: FR (occurrence: FR)
  Receive Date: 20200716
  Receipt Date: 20201218
  Transmission Date: 20210113
  Serious: Yes (Hospitalization, Disabling, Other)
  Sender: FDA-Public Use
  Company Number: FR-AMGEN-FRASP2020111316

PATIENT
  Age: 40 Year
  Sex: Female
  Weight: 47 kg

DRUGS (3)
  1. OTEZLA [Suspect]
     Active Substance: APREMILAST
     Indication: NAIL PSORIASIS
     Dosage: 30 MILLIGRAM, BID
     Route: 065
     Dates: start: 201911, end: 202001
  2. TRAMADOL. [Concomitant]
     Active Substance: TRAMADOL
     Dosage: UNK
     Route: 065
     Dates: start: 20200601
  3. OTEZLA [Suspect]
     Active Substance: APREMILAST
     Dosage: 30 MILLIGRAM, BID
     Route: 065
     Dates: start: 20200429, end: 202007

REACTIONS (18)
  - Cachexia [Not Recovered/Not Resolved]
  - Feeling abnormal [Recovering/Resolving]
  - Intraocular pressure increased [Recovering/Resolving]
  - Asthenia [Not Recovered/Not Resolved]
  - Depressed mood [Recovering/Resolving]
  - Dizziness [Unknown]
  - Discomfort [Unknown]
  - Dyspnoea [Unknown]
  - Asthenopia [Recovering/Resolving]
  - Migraine [Recovering/Resolving]
  - May-Thurner syndrome [Not Recovered/Not Resolved]
  - Deep vein thrombosis [Not Recovered/Not Resolved]
  - Adverse event [Unknown]
  - Fatigue [Recovering/Resolving]
  - Nausea [Recovering/Resolving]
  - Tachycardia [Unknown]
  - Weight decreased [Recovering/Resolving]
  - Diarrhoea [Recovering/Resolving]

NARRATIVE: CASE EVENT DATE: 2019
